FAERS Safety Report 23364058 (Version 4)
Quarter: 2024Q1

REPORT INFORMATION
  Report Type: Spontaneous
  Country: PT (occurrence: PT)
  Receive Date: 20240104
  Receipt Date: 20240111
  Transmission Date: 20240410
  Serious: Yes (Other)
  Sender: FDA-Public Use
  Company Number: PT-009507513-2311PRT009548

PATIENT
  Age: 65 Year
  Sex: Male

DRUGS (9)
  1. PREZISTA [Interacting]
     Active Substance: DARUNAVIR ETHANOLATE
     Indication: HIV infection
     Dosage: UNK
     Route: 065
     Dates: end: 202203
  2. PREZISTA [Interacting]
     Active Substance: DARUNAVIR ETHANOLATE
     Indication: HIV infection
  3. ETRAVIRINE [Suspect]
     Active Substance: ETRAVIRINE
     Indication: HIV infection
     Dosage: UNK
     Route: 048
     Dates: end: 202203
  4. RALTEGRAVIR POTASSIUM [Suspect]
     Active Substance: RALTEGRAVIR POTASSIUM
     Indication: HIV infection
     Dosage: UNK
     Route: 048
     Dates: start: 200606, end: 202111
  5. RALTEGRAVIR POTASSIUM [Suspect]
     Active Substance: RALTEGRAVIR POTASSIUM
     Indication: HIV infection
     Dosage: UNK
     Route: 048
     Dates: start: 201108, end: 202203
  6. DORAVIRINE [Suspect]
     Active Substance: DORAVIRINE
     Indication: HIV infection
     Dosage: UNK
     Route: 048
  7. DORAVIRINE [Suspect]
     Active Substance: DORAVIRINE
     Indication: HIV infection
     Dosage: UNK
     Route: 048
     Dates: start: 202203
  8. DOLUTEGRAVIR [Suspect]
     Active Substance: DOLUTEGRAVIR
     Indication: HIV infection
     Dosage: UNK
     Route: 065
     Dates: start: 202203
  9. DOLUTEGRAVIR [Suspect]
     Active Substance: DOLUTEGRAVIR
     Indication: HIV infection

REACTIONS (10)
  - Acute myocardial infarction [Not Recovered/Not Resolved]
  - Drug interaction [Recovered/Resolved]
  - Off label use [Unknown]
  - Drug resistance mutation [Not Recovered/Not Resolved]
  - CD4 lymphocyte percentage decreased [Unknown]
  - Blood HIV RNA increased [Recovered/Resolved]
  - Dyslipidaemia [Unknown]
  - Hypertension [Unknown]
  - CD4 lymphocytes decreased [Unknown]
  - Drug resistance mutation [Not Recovered/Not Resolved]

NARRATIVE: CASE EVENT DATE: 20210701
